FAERS Safety Report 25215362 (Version 1)
Quarter: 2025Q2

REPORT INFORMATION
  Report Type: Spontaneous
  Country: US (occurrence: US)
  Receive Date: 20250418
  Receipt Date: 20250418
  Transmission Date: 20250717
  Serious: No
  Sender: ROCHE
  Company Number: US-ROCHE-10000261015

PATIENT
  Sex: Female

DRUGS (3)
  1. ROZLYTREK [Suspect]
     Active Substance: ENTRECTINIB
     Indication: Neoplasm
     Route: 065
  2. ROZLYTREK [Suspect]
     Active Substance: ENTRECTINIB
     Route: 065
  3. ROZLYTREK [Suspect]
     Active Substance: ENTRECTINIB
     Route: 065

REACTIONS (1)
  - Neurotoxicity [Unknown]
